FAERS Safety Report 11348310 (Version 2)
Quarter: 2015Q4

REPORT INFORMATION
  Report Type: Spontaneous
  Country: US (occurrence: US)
  Receive Date: 20150806
  Receipt Date: 20151110
  Transmission Date: 20160304
  Serious: Yes (Hospitalization)
  Sender: FDA-Public Use
  Company Number: US-INCYTE CORPORATION-2015IN003720

PATIENT
  Age: 84 Year
  Sex: Female
  Weight: 94.3 kg

DRUGS (4)
  1. CRESTOR [Concomitant]
     Active Substance: ROSUVASTATIN CALCIUM
  2. JAKAFI [Suspect]
     Active Substance: RUXOLITINIB
     Indication: POLYCYTHAEMIA VERA
     Dosage: 10 MG, BID
     Route: 048
     Dates: start: 20150411
  3. XARELTO [Concomitant]
     Active Substance: RIVAROXABAN
  4. METOPROLOL [Concomitant]
     Active Substance: METOPROLOL

REACTIONS (1)
  - Cellulitis [Recovering/Resolving]

NARRATIVE: CASE EVENT DATE: 20150703
